FAERS Safety Report 19286496 (Version 5)
Quarter: 2022Q1

REPORT INFORMATION
  Report Type: Spontaneous
  Country: US (occurrence: US)
  Receive Date: 20210521
  Receipt Date: 20220125
  Transmission Date: 20220423
  Serious: Yes (Hospitalization, Other)
  Sender: FDA-Public Use
  Company Number: US-009507513-2105USA003696

PATIENT
  Sex: Female

DRUGS (3)
  1. KEYTRUDA [Suspect]
     Active Substance: PEMBROLIZUMAB
     Indication: Ovarian epithelial cancer recurrent
     Dosage: 200 MILLIGRAM, Q3W
     Route: 042
     Dates: start: 20210412, end: 202105
  2. GEMZAR [Suspect]
     Active Substance: GEMCITABINE HYDROCHLORIDE
     Indication: Ovarian epithelial cancer recurrent
     Dosage: UNK
     Route: 042
  3. MESTINON [Suspect]
     Active Substance: PYRIDOSTIGMINE BROMIDE
     Dosage: UNK

REACTIONS (19)
  - Immune-mediated lung disease [Recovered/Resolved]
  - Ill-defined disorder [Not Recovered/Not Resolved]
  - Malignant neoplasm progression [Unknown]
  - Neuropathy peripheral [Unknown]
  - Myasthenia gravis [Unknown]
  - Headache [Recovering/Resolving]
  - Orthostatic hypertension [Recovering/Resolving]
  - Cognitive disorder [Recovering/Resolving]
  - Stomatitis [Recovered/Resolved]
  - Transaminases increased [Recovered/Resolved]
  - Asthenia [Recovering/Resolving]
  - Strabismus [Not Recovered/Not Resolved]
  - Dyskinesia [Unknown]
  - Hypoacusis [Not Recovered/Not Resolved]
  - Visual impairment [Unknown]
  - Muscle twitching [Not Recovered/Not Resolved]
  - Abdominal pain upper [Unknown]
  - Nausea [Unknown]
  - Product use in unapproved indication [Unknown]

NARRATIVE: CASE EVENT DATE: 20210101
